FAERS Safety Report 10027416 (Version 1)
Quarter: 2014Q1

REPORT INFORMATION
  Report Type: Report from Study
  Country: US (occurrence: US)
  Receive Date: 20140321
  Receipt Date: 20140321
  Transmission Date: 20141002
  Serious: Yes (Hospitalization)
  Sender: FDA-Public Use
  Company Number: US-ROCHE-1362880

PATIENT
  Age: 62 Year
  Sex: Male

DRUGS (1)
  1. XELODA [Suspect]
     Indication: COLORECTAL CANCER
     Route: 048
     Dates: start: 201312, end: 201403

REACTIONS (9)
  - Decreased appetite [Recovering/Resolving]
  - Blood pressure decreased [Recovering/Resolving]
  - Diarrhoea [Recovering/Resolving]
  - Dehydration [Recovered/Resolved]
  - Blood electrolytes decreased [Unknown]
  - Dizziness [Recovering/Resolving]
  - Weight decreased [Unknown]
  - Constipation [Recovering/Resolving]
  - Ageusia [Recovering/Resolving]
